FAERS Safety Report 4958030-7 (Version None)
Quarter: 2006Q1

REPORT INFORMATION
  Report Type: 
  Country: None (occurrence: None)
  Receive Date: 20060330
  Receipt Date: 20050429
  Transmission Date: 20060701
  Serious: Yes (Hospitalization, Other)
  Sender: FDA-Public Use
  Company Number: US-MERCK-0505USA00918

PATIENT
  Age: 83 Year
  Sex: Female
  Weight: 59 kg

DRUGS (2)
  1. VIOXX [Suspect]
     Indication: ARTHRITIS
     Route: 048
     Dates: start: 20010101
  2. TYLENOL (CAPLET) [Concomitant]
     Route: 065

REACTIONS (14)
  - ABDOMINAL PAIN [None]
  - ADVERSE EVENT [None]
  - ARTHRALGIA [None]
  - CARDIOVASCULAR DISORDER [None]
  - CEREBROVASCULAR ACCIDENT [None]
  - CHEST PAIN [None]
  - DEPRESSION [None]
  - DIZZINESS [None]
  - DYSPNOEA [None]
  - MYOCARDIAL INFARCTION [None]
  - OEDEMA PERIPHERAL [None]
  - ROAD TRAFFIC ACCIDENT [None]
  - THROMBOSIS [None]
  - URINARY TRACT INFECTION [None]
